FAERS Safety Report 15204541 (Version 3)
Quarter: 2018Q3

REPORT INFORMATION
  Report Type: Spontaneous
  Country: SK (occurrence: SK)
  Receive Date: 20180726
  Receipt Date: 20180926
  Transmission Date: 20181010
  Serious: Yes (Other)
  Sender: FDA-Public Use
  Company Number: SK-MYLANLABS-2018M1055322

PATIENT
  Age: 36 Year
  Sex: Male

DRUGS (8)
  1. RITUXIMAB. [Suspect]
     Active Substance: RITUXIMAB
     Indication: HODGKIN^S DISEASE
     Dosage: (PART OF DHAP CHEMOTHERAPY) CYCLIC
     Dates: start: 201509, end: 201509
  2. ETOPOSIDE. [Suspect]
     Active Substance: ETOPOSIDE
     Indication: HODGKIN^S DISEASE
     Dosage: (PART OF BEEAM REGIMEN) CYCLIC
     Dates: start: 201509, end: 201509
  3. CYTARABINE. [Suspect]
     Active Substance: CYTARABINE
     Indication: HODGKIN^S DISEASE
     Dosage: (PART OF DHAP CHEMOTHERAPY) CYCLIC
     Dates: start: 201509, end: 201509
  4. CISPLATIN. [Suspect]
     Active Substance: CISPLATIN
     Indication: HODGKIN^S DISEASE
     Dosage: (PART OF DHAP CHEMOTHERAPY), CYCLIC
     Dates: start: 201509, end: 201509
  5. BENDAMUSTINE HYDROCHLORIDE. [Suspect]
     Active Substance: BENDAMUSTINE HYDROCHLORIDE
     Indication: HODGKIN^S DISEASE
     Dosage: (PART OF BEEAM REGIMEN),CYCLIC
     Route: 042
     Dates: start: 201509, end: 201509
  6. DEXAMETHASONE. [Suspect]
     Active Substance: DEXAMETHASONE
     Indication: HODGKIN^S DISEASE
     Dosage: UNK (PART OF DHAP CHEMOTHERAPY), CYCLIC
     Dates: start: 201509, end: 201509
  7. CYTARABINE. [Suspect]
     Active Substance: CYTARABINE
     Dosage: (PART OF BEEAM REGIMEN) CYCLIC
     Dates: start: 201509, end: 201509
  8. MELPHALAN. [Suspect]
     Active Substance: MELPHALAN
     Indication: HODGKIN^S DISEASE
     Dosage: (PART OF BEEAM REGIMEN) CYCLIC
     Dates: start: 201509, end: 201509

REACTIONS (4)
  - Renal impairment [Unknown]
  - Product use in unapproved indication [Unknown]
  - Neoplasm progression [Recovered/Resolved]
  - Nephropathy [Unknown]

NARRATIVE: CASE EVENT DATE: 201509
